FAERS Safety Report 5964580-7 (Version None)
Quarter: 2008Q4

REPORT INFORMATION
  Report Type: 
  Country: None (occurrence: None)
  Receive Date: 20081125
  Receipt Date: 20081118
  Transmission Date: 20090506
  Serious: Yes (Hospitalization, Other)
  Sender: FDA-Public Use
  Company Number: US-B.I. PHARMACEUTICALS,INC./RIDGEFIELD-2008-BP-17538BP

PATIENT
  Sex: Male

DRUGS (1)
  1. FLOMAX [Suspect]

REACTIONS (1)
  - SYNCOPE [None]
